FAERS Safety Report 25075011 (Version 1)
Quarter: 2025Q1

REPORT INFORMATION
  Report Type: Spontaneous
  Country: ET (occurrence: ET)
  Receive Date: 20250313
  Receipt Date: 20250313
  Transmission Date: 20250409
  Serious: Yes (Hospitalization, Other)
  Sender: AMNEAL
  Company Number: ET-AMNEAL PHARMACEUTICALS-2025-AMRX-00918

PATIENT
  Age: 43 Year
  Sex: Male

DRUGS (1)
  1. ATROPINE SULFATE [Suspect]
     Active Substance: ATROPINE SULFATE
     Indication: Bradycardia
     Route: 065

REACTIONS (1)
  - Hypertensive urgency [Recovered/Resolved]
